FAERS Safety Report 4474199-5 (Version None)
Quarter: 2004Q4

REPORT INFORMATION
  Report Type: 
  Country: None (occurrence: None)
  Receive Date: 20041008
  Receipt Date: 20040915
  Transmission Date: 20050328
  Serious: Yes (Death, Life-Threatening, Hospitalization)
  Sender: FDA-Public Use
  Company Number: JP_040302828

PATIENT
  Age: 43 Year
  Sex: Female
  Weight: 46 kg

DRUGS (9)
  1. GEMZAR [Suspect]
     Indication: PANCREATIC CARCINOMA STAGE III
     Dosage: 250 MG/M2 OTHER
     Route: 042
     Dates: start: 20011120, end: 20011211
  2. RADIATION THERAPY [Concomitant]
  3. MS CONTIN [Concomitant]
  4. VOLTAREN [Concomitant]
  5. HALCION [Concomitant]
  6. MAGNESIUM OXIDE [Concomitant]
  7. AMINOFLUID [Concomitant]
  8. GASTER           (FAMOTIDINE) [Concomitant]
  9. VITAMEDIN INTRAVENOUS [Concomitant]

REACTIONS (8)
  - ANAEMIA [None]
  - BLOOD PRESSURE DECREASED [None]
  - CHOLANGITIS [None]
  - GASTROINTESTINAL HAEMORRHAGE [None]
  - MALIGNANT NEOPLASM PROGRESSION [None]
  - MELAENA [None]
  - PANCREATIC CARCINOMA [None]
  - SEPSIS [None]
